FAERS Safety Report 16741231 (Version 1)
Quarter: 2019Q4

REPORT INFORMATION
  Report Type: Spontaneous
  Country: US (occurrence: US)
  Receive Date: 20190822
  Receipt Date: 20190822
  Transmission Date: 20200122
  Serious: Yes (Disabling)
  Sender: FDA-Public Use
  Company Number: None

PATIENT
  Age: 52 Year
  Sex: Female
  Weight: 55.8 kg

DRUGS (3)
  1. WESTHROID [Concomitant]
     Active Substance: THYROGLOBULIN
  2. SOTTOPELLE PELLET (BHRT TESTOSTERONE) [Suspect]
     Active Substance: TESTOSTERONE
     Indication: HORMONE REPLACEMENT THERAPY
     Dosage: ?          OTHER FREQUENCY:6MOS;?
     Route: 058
     Dates: start: 20180305, end: 20180305
  3. SOTTOPELLE PELLET (BHRT ESTRADIOL) [Suspect]
     Active Substance: ESTRADIOL

REACTIONS (8)
  - Overdose [None]
  - Blindness [None]
  - Oedema [None]
  - Mobility decreased [None]
  - Hormone level abnormal [None]
  - Loss of employment [None]
  - Alopecia [None]
  - Heart rate decreased [None]

NARRATIVE: CASE EVENT DATE: 20180305
